FAERS Safety Report 24879625 (Version 7)
Quarter: 2025Q2

REPORT INFORMATION
  Report Type: Report from Study
  Country: CA (occurrence: CA)
  Receive Date: 20250123
  Receipt Date: 20250619
  Transmission Date: 20250716
  Serious: Yes (Other)
  Sender: JOHNSON AND JOHNSON
  Company Number: CA-JNJFOC-20230859090

PATIENT
  Age: 63 Year
  Sex: Female
  Weight: 77.9 kg

DRUGS (13)
  1. SIMPONI [Suspect]
     Active Substance: GOLIMUMAB
     Indication: Rheumatoid arthritis
     Route: 041
  2. SIMPONI [Suspect]
     Active Substance: GOLIMUMAB
     Dosage: DOSE: 2
     Route: 041
  3. SIMPONI [Suspect]
     Active Substance: GOLIMUMAB
     Dosage: THERAPY DATE :04/OCT/2023
     Route: 041
  4. SIMPONI [Suspect]
     Active Substance: GOLIMUMAB
     Dosage: STRENGTH: 50MG/4ML
     Route: 041
  5. SIMPONI [Suspect]
     Active Substance: GOLIMUMAB
     Route: 041
  6. SIMPONI [Suspect]
     Active Substance: GOLIMUMAB
     Route: 041
     Dates: start: 20241017
  7. SIMPONI [Suspect]
     Active Substance: GOLIMUMAB
     Route: 041
     Dates: start: 20241211
  8. SIMPONI [Suspect]
     Active Substance: GOLIMUMAB
     Route: 041
     Dates: start: 20220706
  9. SIMPONI [Suspect]
     Active Substance: GOLIMUMAB
     Route: 041
     Dates: start: 20220706
  10. SIMPONI [Suspect]
     Active Substance: GOLIMUMAB
     Route: 041
     Dates: start: 20220706
  11. SIMPONI [Suspect]
     Active Substance: GOLIMUMAB
     Route: 041
     Dates: start: 20240125
  12. SIMPONI [Suspect]
     Active Substance: GOLIMUMAB
     Route: 041
  13. PREDNISONE [Suspect]
     Active Substance: PREDNISONE
     Indication: Product used for unknown indication
     Route: 065

REACTIONS (13)
  - Rheumatoid arthritis [Unknown]
  - Carpal tunnel syndrome [Unknown]
  - Osteomyelitis [Recovered/Resolved]
  - Foot deformity [Unknown]
  - Cataract [Unknown]
  - Synovitis [Unknown]
  - Fatigue [Unknown]
  - Product use complaint [Unknown]
  - Bursitis infective [Recovered/Resolved]
  - Throat irritation [Unknown]
  - Hyperkeratosis [Unknown]
  - Malaise [Unknown]
  - Off label use [Unknown]

NARRATIVE: CASE EVENT DATE: 20240101
